FAERS Safety Report 8618770-5 (Version None)
Quarter: 2012Q3

REPORT INFORMATION
  Report Type: 
  Country: None (occurrence: None)
  Receive Date: 20120824
  Receipt Date: 20120820
  Transmission Date: 20120928
  Serious: Yes (Death, Life-Threatening, Hospitalization, Other)
  Sender: FDA-Public Use
  Company Number: JP-JNJFOC-20120311725

PATIENT
  Sex: Male
  Weight: 41 kg

DRUGS (14)
  1. MAGMITT [Concomitant]
     Indication: CONSTIPATION
     Dosage: 1 PER 1 DAY
     Route: 048
     Dates: end: 20120314
  2. LYRICA [Suspect]
     Dosage: 1 PER 1 DAY
     Route: 048
     Dates: start: 20120221, end: 20120312
  3. AMOBAN [Concomitant]
     Indication: INSOMNIA
     Dosage: 1 PER 1 DAY
     Route: 048
     Dates: end: 20120314
  4. SELBEX [Concomitant]
     Indication: GASTRITIS PROPHYLAXIS
     Dosage: 1 PER 1 DAY
     Route: 048
     Dates: start: 20120210, end: 20120314
  5. PRIMPERAN TAB [Concomitant]
     Indication: PROPHYLAXIS
     Dosage: 1 PER 1 DAY
     Route: 048
     Dates: start: 20120313, end: 20120314
  6. LASIX [Concomitant]
     Indication: HYPERTENSION
     Dosage: 1 PER 1 DAY
     Route: 048
     Dates: end: 20120314
  7. SPIRIVA [Concomitant]
     Indication: EMPHYSEMA
     Dosage: 1 PER 1 DAY
     Route: 055
     Dates: end: 20120314
  8. TRAMADOL HCL [Suspect]
     Indication: PAIN
     Dosage: 1 PER 1 DAY
     Route: 048
     Dates: start: 20120313, end: 20120314
  9. ALLOPURINOL [Concomitant]
     Indication: HYPERTENSION
     Dosage: 1 PER 1 DAY
     Route: 048
     Dates: end: 20120314
  10. FAMOTIDINE [Concomitant]
     Indication: GASTRITIS PROPHYLAXIS
     Dosage: 1 PER 1 DAY
     Route: 048
     Dates: end: 20120314
  11. LYRICA [Suspect]
     Indication: PAIN
     Dosage: 1 PER 1 DAY
     Route: 048
     Dates: start: 20120313, end: 20120314
  12. LANIRAPID [Concomitant]
     Indication: PRODUCT USED FOR UNKNOWN INDICATION
     Dosage: 1 PER 1 DAY
     Route: 048
     Dates: end: 20120314
  13. EPLERENONE [Concomitant]
     Indication: CONGESTIVE CARDIOMYOPATHY
     Dosage: 1 PER 1 DAY
     Route: 048
     Dates: end: 20120314
  14. SENNOSIDE [Concomitant]
     Indication: CONSTIPATION
     Dosage: 1 PER 1 DAY
     Route: 048
     Dates: start: 20110517, end: 20120314

REACTIONS (12)
  - CARDIAC ARREST [None]
  - CARDIAC FAILURE [None]
  - HYPERCAPNIA [None]
  - RESPIRATORY DEPRESSION [None]
  - RENAL FAILURE [None]
  - DEPRESSED LEVEL OF CONSCIOUSNESS [None]
  - SOMNOLENCE [None]
  - HALLUCINATION, VISUAL [None]
  - HYPERKALAEMIA [None]
  - ATRIAL FIBRILLATION [None]
  - TACHYCARDIA [None]
  - PERSONALITY DISORDER [None]
